FAERS Safety Report 4881622-0 (Version None)
Quarter: 2006Q1

REPORT INFORMATION
  Report Type: 
  Country: None (occurrence: None)
  Receive Date: 20060116
  Receipt Date: 20051028
  Transmission Date: 20060701
  Serious: Yes (Hospitalization, Other)
  Sender: FDA-Public Use
  Company Number: PHEH2005US11978

PATIENT
  Age: 55 Year
  Sex: Female

DRUGS (8)
  1. LOPRESSOR [Suspect]
     Indication: HYPERTENSION
     Dosage: UNK
  2. PEGASYS [Suspect]
     Indication: HEPATITIS C VIRUS
     Dates: start: 20050415, end: 20050515
  3. COPEGUS [Suspect]
     Indication: HEPATITIS C VIRUS
     Dosage: 200 MG, UNK
     Route: 048
     Dates: start: 20050415, end: 20050515
  4. CLONIDINE [Suspect]
  5. OXYCODONE [Suspect]
  6. ZESTRIL [Concomitant]
  7. VICOPROFEN [Concomitant]
  8. PROZAC [Concomitant]

REACTIONS (14)
  - AGGRESSION [None]
  - ALOPECIA [None]
  - AMNESIA [None]
  - BALANCE DISORDER [None]
  - BONE MARROW FAILURE [None]
  - DISTURBANCE IN ATTENTION [None]
  - FALL [None]
  - HALLUCINATION, AUDITORY [None]
  - INTENTIONAL OVERDOSE [None]
  - PAIN [None]
  - RIB FRACTURE [None]
  - SCHIZOPHRENIA [None]
  - SUICIDE ATTEMPT [None]
  - VOMITING [None]
